FAERS Safety Report 13936084 (Version 3)
Quarter: 2017Q3

REPORT INFORMATION
  Report Type: Spontaneous
  Country: US (occurrence: US)
  Receive Date: 20170905
  Receipt Date: 20170925
  Transmission Date: 20171127
  Serious: Yes (Life-Threatening, Hospitalization)
  Sender: FDA-Public Use
  Company Number: US-JNJFOC-20170901146

PATIENT
  Age: 35 Year
  Sex: Female
  Weight: 48 kg

DRUGS (9)
  1. VANCOMYCIN [Concomitant]
     Active Substance: VANCOMYCIN
     Indication: ENDOCARDITIS
     Dosage: 600 MG-1000 MG Q 6-8 HOURS
     Route: 042
     Dates: start: 20170711, end: 20170828
  2. XARELTO [Suspect]
     Active Substance: RIVAROXABAN
     Indication: DEEP VEIN THROMBOSIS
     Route: 048
     Dates: start: 20170726, end: 20170815
  3. FLORASTOR [Concomitant]
     Active Substance: SACCHAROMYCES CEREVISIAE
     Dosage: 250 MG PO TD
     Route: 048
     Dates: start: 20170712, end: 20170911
  4. XARELTO [Suspect]
     Active Substance: RIVAROXABAN
     Indication: PULMONARY EMBOLISM
     Dosage: WITH EVENING MEAL
     Route: 048
     Dates: start: 20170816
  5. NICOTINE. [Concomitant]
     Active Substance: NICOTINE
     Route: 065
     Dates: start: 20170711, end: 20170911
  6. XARELTO [Suspect]
     Active Substance: RIVAROXABAN
     Indication: PULMONARY EMBOLISM
     Route: 048
     Dates: start: 20170726, end: 20170815
  7. LORAZEPAM. [Concomitant]
     Active Substance: LORAZEPAM
     Dosage: 0.5- 1MG PO Q4H PRN
     Route: 048
     Dates: start: 20170711, end: 20170828
  8. XARELTO [Suspect]
     Active Substance: RIVAROXABAN
     Indication: DEEP VEIN THROMBOSIS
     Dosage: WITH EVENING MEAL
     Route: 048
     Dates: start: 20170816
  9. DOCUSATE [Concomitant]
     Active Substance: DOCUSATE
     Dosage: QHS PRN
     Route: 065
     Dates: start: 20170711, end: 20170911

REACTIONS (1)
  - Pulmonary embolism [Recovering/Resolving]

NARRATIVE: CASE EVENT DATE: 20170823
